FAERS Safety Report 9803245 (Version 2)
Quarter: 2014Q2

REPORT INFORMATION
  Report Type: Report from Study
  Country: CA (occurrence: CA)
  Receive Date: 20140108
  Receipt Date: 20140502
  Transmission Date: 20141212
  Serious: Yes (Death)
  Sender: FDA-Public Use
  Company Number: PHHY2014CA001569

PATIENT
  Sex: Male

DRUGS (13)
  1. CLOZARIL [Suspect]
     Indication: BIPOLAR DISORDER
     Dosage: UNK UKN, UNK
     Dates: start: 20090703
  2. CLOZARIL [Suspect]
     Dosage: 250 MG, UNK
     Route: 048
     Dates: start: 20131203
  3. ATROPINE SULFATE [Concomitant]
  4. TIOTROPIUM BROMIDE [Concomitant]
  5. TYLENOL [Concomitant]
  6. LACTULOSE [Concomitant]
  7. SALBUTAMOL [Concomitant]
  8. DOMPERIDONE [Concomitant]
  9. VITAMIN D [Concomitant]
  10. ASA [Concomitant]
  11. RABEPRAZOLE [Concomitant]
  12. DIVALPROEX [Concomitant]
  13. QUETIAPINE [Concomitant]

REACTIONS (1)
  - Pneumonia [Fatal]
